FAERS Safety Report 14290202 (Version 10)
Quarter: 2019Q1

REPORT INFORMATION
  Report Type: Report from Study
  Country: None (occurrence: US)
  Receive Date: 20171215
  Receipt Date: 20190329
  Transmission Date: 20190417
  Serious: Yes (Life-Threatening, Hospitalization, Other)
  Sender: FDA-Public Use
  Company Number: US-ABBVIE-16K-163-1776791-00

PATIENT
  Age: 68 Year
  Sex: Female
  Weight: 71.28 kg

DRUGS (19)
  1. HUMIRA [Suspect]
     Active Substance: ADALIMUMAB
     Indication: ARTHRITIS
  2. PROPOFOL. [Suspect]
     Active Substance: PROPOFOL
     Indication: PRODUCT USED FOR UNKNOWN INDICATION
     Route: 065
  3. EUCALYPTUS [Suspect]
     Active Substance: EUCALYPTUS GLOBULUS POLLEN\EUCALYPTUS GUM
     Indication: PRODUCT USED FOR UNKNOWN INDICATION
     Route: 065
  4. LEVOTHYROXINE. [Concomitant]
     Active Substance: LEVOTHYROXINE
     Indication: HYPOTHYROIDISM
  5. LIOTHYRONINE [Concomitant]
     Active Substance: LIOTHYRONINE
     Indication: HORMONE REPLACEMENT THERAPY
  6. ROSUVASTATIN. [Concomitant]
     Active Substance: ROSUVASTATIN
     Indication: PRODUCT USED FOR UNKNOWN INDICATION
  7. QUINIDINE [Concomitant]
     Active Substance: QUINIDINE
     Indication: PRODUCT USED FOR UNKNOWN INDICATION
  8. XANAX [Concomitant]
     Active Substance: ALPRAZOLAM
     Indication: ANXIETY
  9. AMLODIPINE [Concomitant]
     Active Substance: AMLODIPINE BESYLATE
     Indication: HYPERTENSION
  10. GABAPENTIN. [Concomitant]
     Active Substance: GABAPENTIN
     Indication: PRODUCT USED FOR UNKNOWN INDICATION
  11. CYTOMEL [Concomitant]
     Active Substance: LIOTHYRONINE SODIUM
     Indication: HYPOTHYROIDISM
  12. FORTEO [Concomitant]
     Active Substance: TERIPARATIDE
     Indication: PRODUCT USED FOR UNKNOWN INDICATION
  13. WELLBUTRIN [Concomitant]
     Active Substance: BUPROPION HYDROCHLORIDE
     Indication: PRODUCT USED FOR UNKNOWN INDICATION
  14. FLUOXETINE [Concomitant]
     Active Substance: FLUOXETINE HYDROCHLORIDE
     Indication: PRODUCT USED FOR UNKNOWN INDICATION
  15. OMEPRAZOLE. [Concomitant]
     Active Substance: OMEPRAZOLE
     Indication: GASTROOESOPHAGEAL REFLUX DISEASE
  16. PROZAC [Concomitant]
     Active Substance: FLUOXETINE HYDROCHLORIDE
     Indication: PRODUCT USED FOR UNKNOWN INDICATION
  17. HUMIRA [Suspect]
     Active Substance: ADALIMUMAB
     Indication: CROHN^S DISEASE
     Route: 058
     Dates: start: 20160519
  18. LISINOPRIL. [Concomitant]
     Active Substance: LISINOPRIL
     Indication: HYPERTENSION
  19. ASPIRIN. [Concomitant]
     Active Substance: ASPIRIN
     Indication: PRODUCT USED FOR UNKNOWN INDICATION

REACTIONS (67)
  - Hip fracture [Unknown]
  - Asthenia [Recovered/Resolved]
  - Inappropriate schedule of product administration [Unknown]
  - Gait disturbance [Unknown]
  - Dizziness [Unknown]
  - Arthritis [Unknown]
  - Crohn^s disease [Unknown]
  - Hypertension [Unknown]
  - Loss of consciousness [Unknown]
  - Memory impairment [Unknown]
  - Decreased appetite [Recovered/Resolved]
  - Frequent bowel movements [Unknown]
  - Hallucination, visual [Unknown]
  - Limb injury [Unknown]
  - Osteoporosis [Unknown]
  - Swelling [Unknown]
  - Contusion [Unknown]
  - Contusion [Unknown]
  - Rectal haemorrhage [Unknown]
  - Allergic respiratory symptom [Recovered/Resolved]
  - Malignant melanoma [Unknown]
  - Weight decreased [Unknown]
  - Food intolerance [Unknown]
  - Asthenia [Unknown]
  - Vitamin D decreased [Unknown]
  - Haematochezia [Unknown]
  - Musculoskeletal discomfort [Unknown]
  - Rectal haemorrhage [Unknown]
  - Cerebrovascular accident [Recovered/Resolved]
  - Cerebrovascular accident [Unknown]
  - Constipation [Recovered/Resolved]
  - Allergy to plants [Unknown]
  - Thirst decreased [Unknown]
  - Constipation [Unknown]
  - Epistaxis [Unknown]
  - Abdominal pain lower [Unknown]
  - Post-traumatic pain [Unknown]
  - Fall [Recovered/Resolved]
  - Cerebrovascular accident [Recovered/Resolved]
  - Drug hypersensitivity [Unknown]
  - Dizziness [Recovered/Resolved]
  - Mobility decreased [Unknown]
  - Abnormal faeces [Unknown]
  - Dyschezia [Unknown]
  - Drug effect decreased [Unknown]
  - Therapeutic response shortened [Unknown]
  - Musculoskeletal pain [Unknown]
  - Diarrhoea [Unknown]
  - Peripheral swelling [Unknown]
  - Confusional state [Unknown]
  - Fall [Recovering/Resolving]
  - Weight increased [Unknown]
  - Fall [Unknown]
  - Diarrhoea [Unknown]
  - Pain in extremity [Unknown]
  - Musculoskeletal chest pain [Unknown]
  - Transient ischaemic attack [Unknown]
  - Depression [Unknown]
  - Pneumonia [Unknown]
  - Influenza [Unknown]
  - Confusional state [Recovered/Resolved]
  - Fatigue [Unknown]
  - Exposure to allergen [Recovered/Resolved]
  - Decreased appetite [Unknown]
  - Feeling abnormal [Unknown]
  - Hallucination, auditory [Unknown]
  - Urinary tract infection [Unknown]

NARRATIVE: CASE EVENT DATE: 201606
